FAERS Safety Report 5674965-4 (Version None)
Quarter: 2008Q2

REPORT INFORMATION
  Report Type: 
  Country: None (occurrence: None)
  Receive Date: 20080303
  Receipt Date: 20070425
  Transmission Date: 20081010
  Serious: Yes (Death)
  Sender: FDA-Public Use
  Company Number: RB-6077-2007

PATIENT
  Sex: Male

DRUGS (2)
  1. SUBOXONE [Suspect]
     Dosage: BOTTLE DATED 12-DEC-2006 PRESCRIBED AS 8MG II DAILY SUBLINGUAL
     Route: 060
  2. METHADON HCL TAB [Suspect]

REACTIONS (1)
  - OVERDOSE [None]
